FAERS Safety Report 17495194 (Version 1)
Quarter: 2020Q1

REPORT INFORMATION
  Report Type: Spontaneous
  Country: US (occurrence: US)
  Receive Date: 20200223
  Receipt Date: 20200223
  Transmission Date: 20200409
  Serious: Yes (Hospitalization)
  Sender: FDA-Public Use
  Company Number: None

PATIENT
  Age: 45 Year
  Sex: Female
  Weight: 113.6 kg

DRUGS (4)
  1. LEUCOVORIN CALCIUM. [Concomitant]
     Active Substance: LEUCOVORIN CALCIUM
     Dates: end: 20191230
  2. 5-FLUOROURACIL (5-FU) [Suspect]
     Active Substance: FLUOROURACIL
     Dates: end: 20191230
  3. OXALIPLATIN. [Concomitant]
     Active Substance: OXALIPLATIN
     Dates: end: 20191230
  4. BEVACIZUMAB. [Concomitant]
     Active Substance: BEVACIZUMAB
     Dates: end: 20191230

REACTIONS (8)
  - Abdominal pain [None]
  - Vomiting [None]
  - Perforation [None]
  - Constipation [None]
  - Obstruction [None]
  - Nausea [None]
  - Malignant neoplasm progression [None]
  - Abscess [None]

NARRATIVE: CASE EVENT DATE: 20200130
